FAERS Safety Report 24575698 (Version 2)
Quarter: 2025Q1

REPORT INFORMATION
  Report Type: Report from Study
  Country: JP (occurrence: JP)
  Receive Date: 20241104
  Receipt Date: 20250207
  Transmission Date: 20250408
  Serious: Yes (Other)
  Sender: ALEXION PHARMACEUTICALS
  Company Number: JP-ASTRAZENECA-240051674_011820_P_1

PATIENT
  Age: 14 Year

DRUGS (2)
  1. KOSELUGO [Suspect]
     Active Substance: SELUMETINIB
     Indication: Neurofibroma
  2. KOSELUGO [Suspect]
     Active Substance: SELUMETINIB

REACTIONS (3)
  - Ventricular hypokinesia [Recovering/Resolving]
  - Paronychia [Recovering/Resolving]
  - Blood creatine phosphokinase increased [Not Recovered/Not Resolved]
